FAERS Safety Report 10234363 (Version 1)
Quarter: 2014Q2

REPORT INFORMATION
  Report Type: Spontaneous
  Country: IN (occurrence: IN)
  Receive Date: 20140612
  Receipt Date: 20140612
  Transmission Date: 20141212
  Serious: Yes (Other)
  Sender: FDA-Public Use
  Company Number: IN-BAXTER-2014BAX029874

PATIENT
  Age: 18 Month
  Sex: Female

DRUGS (2)
  1. HUMAN IMMUNOGLOBULIN IVIG, TRIPLE VIRALLY REDUCED (TVR) SOLUTION FOR I [Suspect]
     Indication: KAWASAKI^S DISEASE
     Dosage: 2 G/KG
     Route: 065
  2. ASPIRIN [Suspect]
     Indication: KAWASAKI^S DISEASE
     Route: 065

REACTIONS (4)
  - Therapeutic response decreased [Unknown]
  - Pyrexia [Recovered/Resolved]
  - Irritability [Recovering/Resolving]
  - Juvenile idiopathic arthritis [Unknown]
